FAERS Safety Report 7369147 (Version 1)
Quarter: 2020Q3

REPORT INFORMATION
  Report Type: Report from Study
  Country: HU (occurrence: HU)
  Receive Date: 20100428
  Receipt Date: 20100428
  Transmission Date: 20201104
  Serious: Yes (Hospitalization)
  Sender: FDA-Public Use
  Company Number: HU-WYE-H14675610

PATIENT
  Age: 61 Year
  Sex: Female
  Weight: 70 kg

DRUGS (4)
  1. CAPECITABINE. [Suspect]
     Active Substance: CAPECITABINE
     Dosage: 2500 MG? TWO DIVIDED DOSES FOR 14 DAYS/CYCLE
     Route: 048
     Dates: start: 20091106
  2. NERATINIB [Suspect]
     Active Substance: NERATINIB
     Route: 048
     Dates: start: 20091108
  3. FRAXIPARIN [Concomitant]
     Dosage: NOT PROVIDED
     Route: 065
     Dates: start: 200811
  4. ALPRAZOLAM. [Concomitant]
     Active Substance: ALPRAZOLAM
     Indication: ANXIETY
     Dosage: NOT PROVIDED
     Route: 065
     Dates: start: 20080301

REACTIONS (1)
  - Proctitis [Recovered/Resolved]

NARRATIVE: CASE EVENT DATE: 20100407
